FAERS Safety Report 25154954 (Version 1)
Quarter: 2025Q2

REPORT INFORMATION
  Report Type: Spontaneous
  Country: AU (occurrence: AU)
  Receive Date: 20250403
  Receipt Date: 20250403
  Transmission Date: 20250716
  Serious: Yes (Other)
  Sender: STRIDES
  Company Number: AU-STRIDES ARCOLAB LIMITED-2025SP004178

PATIENT
  Age: 55 Year
  Sex: Female

DRUGS (2)
  1. SEVELAMER CARBONATE [Suspect]
     Active Substance: SEVELAMER CARBONATE
     Indication: End stage renal disease
     Route: 065
  2. KAYEXALATE [Suspect]
     Active Substance: SODIUM POLYSTYRENE SULFONATE
     Indication: End stage renal disease
     Route: 065

REACTIONS (3)
  - Intestinal polyp [Recovering/Resolving]
  - Intestinal mass [Recovering/Resolving]
  - Off label use [Unknown]
